FAERS Safety Report 5823238-5 (Version None)
Quarter: 2008Q3

REPORT INFORMATION
  Report Type: 
  Country: None (occurrence: None)
  Receive Date: 20080725
  Receipt Date: 20080506
  Transmission Date: 20090109
  Serious: No
  Sender: FDA-Public Use
  Company Number: A0726560A

PATIENT
  Age: 78 Year
  Sex: Female

DRUGS (6)
  1. DYAZIDE [Suspect]
     Indication: HYPERTENSION
     Dosage: 37.5MG PER DAY
     Route: 048
     Dates: start: 19780101
  2. VITAMIN E [Concomitant]
  3. ADVAIR DISKUS 100/50 [Concomitant]
  4. SINGULAIR [Concomitant]
  5. ALLEGRA [Concomitant]
  6. PRILOSEC [Concomitant]

REACTIONS (1)
  - NAUSEA [None]
